FAERS Safety Report 14108389 (Version 5)
Quarter: 2017Q4

REPORT INFORMATION
  Report Type: Spontaneous
  Country: US (occurrence: US)
  Receive Date: 20171019
  Receipt Date: 20171221
  Transmission Date: 20180321
  Serious: Yes (Hospitalization, Other)
  Sender: FDA-Public Use
  Company Number: US-PFIZER INC-2017447646

PATIENT
  Age: 71 Year
  Sex: Female

DRUGS (1)
  1. XELJANZ XR [Suspect]
     Active Substance: TOFACITINIB CITRATE
     Dosage: 11 MG, UNK

REACTIONS (8)
  - Pain in extremity [Unknown]
  - Movement disorder [Unknown]
  - Infection [Unknown]
  - Rheumatoid arthritis [Unknown]
  - Injury [Unknown]
  - Peripheral swelling [Unknown]
  - Fall [Unknown]
  - Urinary tract infection [Unknown]
